FAERS Safety Report 9725244 (Version 1)
Quarter: 2013Q4

REPORT INFORMATION
  Report Type: Spontaneous
  Country: US (occurrence: None)
  Receive Date: 20131202
  Receipt Date: 20131202
  Transmission Date: 20140711
  Serious: No
  Sender: FDA-Public Use
  Company Number: None

PATIENT
  Age: 49 Year
  Sex: Female

DRUGS (1)
  1. IMITREX [Suspect]
     Indication: MIGRAINE
     Dosage: 1PILL FIRST FOLLOWED BY 2ND  TAKEN BY MOUTH
     Route: 048

REACTIONS (2)
  - VIIth nerve paralysis [None]
  - Trigeminal nerve disorder [None]
